FAERS Safety Report 10951918 (Version 1)
Quarter: 2015Q1

REPORT INFORMATION
  Report Type: Spontaneous
  Country: DE (occurrence: DE)
  Receive Date: 20150325
  Receipt Date: 20150325
  Transmission Date: 20150721
  Serious: Yes (Disabling)
  Sender: FDA-Public Use
  Company Number: GXKR2015DE001677

PATIENT

DRUGS (1)
  1. LAMOTRIGINE. [Suspect]
     Active Substance: LAMOTRIGINE
     Dosage: UNK UKN, UNK
     Route: 064

REACTIONS (9)
  - Cough [Recovered/Resolved with Sequelae]
  - Retrognathia [Recovered/Resolved with Sequelae]
  - Dwarfism [Recovered/Resolved with Sequelae]
  - Low set ears [Recovered/Resolved with Sequelae]
  - Nipple disorder [Recovered/Resolved with Sequelae]
  - Dysmorphism [Recovered/Resolved with Sequelae]
  - Hypokinesia [Recovered/Resolved with Sequelae]
  - Congenital eyelid malformation [Recovered/Resolved with Sequelae]
  - Hypotension [Recovered/Resolved with Sequelae]
